FAERS Safety Report 8524836-0 (Version None)
Quarter: 2012Q3

REPORT INFORMATION
  Report Type: 
  Country: None (occurrence: None)
  Receive Date: 20120710
  Receipt Date: 20120629
  Transmission Date: 20120928
  Serious: Yes (Disabling, Other)
  Sender: FDA-Public Use
  Company Number: 2012MA008276

PATIENT
  Age: 70 Year
  Sex: Female

DRUGS (1)
  1. METOCLOPRAMIDE HYDROCHLORIDE [Suspect]
     Indication: NAUSEA
     Dosage: 30 MG, QD, SC
     Route: 058
     Dates: start: 20120605, end: 20120605

REACTIONS (4)
  - MIOSIS [None]
  - COMA SCALE ABNORMAL [None]
  - DYSARTHRIA [None]
  - ASTERIXIS [None]
